FAERS Safety Report 24289995 (Version 2)
Quarter: 2024Q3

REPORT INFORMATION
  Report Type: Spontaneous
  Country: US (occurrence: US)
  Receive Date: 20240906
  Receipt Date: 20240930
  Transmission Date: 20241016
  Serious: No
  Sender: ROCHE
  Company Number: US-ROCHE-10000075357

PATIENT
  Age: 34 Year
  Sex: Female

DRUGS (1)
  1. OCREVUS [Suspect]
     Active Substance: OCRELIZUMAB
     Indication: Multiple sclerosis
     Dosage: LAST DOSE OF OCREVUS ON 13/AUG/2024
     Route: 065
     Dates: start: 202401

REACTIONS (7)
  - Peripheral swelling [Unknown]
  - Pain [Unknown]
  - Insomnia [Unknown]
  - Skin infection [Recovering/Resolving]
  - Pharyngitis [Unknown]
  - Illness [Unknown]
  - Erythema [Recovering/Resolving]

NARRATIVE: CASE EVENT DATE: 20240801
